FAERS Safety Report 10711520 (Version 1)
Quarter: 2015Q1

REPORT INFORMATION
  Report Type: Spontaneous
  Country: US (occurrence: US)
  Receive Date: 20150114
  Receipt Date: 20150114
  Transmission Date: 20150721
  Serious: Yes (Death)
  Sender: FDA-Public Use
  Company Number: US-BAYER-2015-004595

PATIENT
  Age: 53 Year
  Sex: Male

DRUGS (6)
  1. DIPHENHYDRAMINE HYDROCHLORIDE. [Suspect]
     Active Substance: DIPHENHYDRAMINE HYDROCHLORIDE
  2. COCAINE [Suspect]
     Active Substance: COCAINE
  3. QUETIAPINE [Suspect]
     Active Substance: QUETIAPINE
  4. VENLAFAXINE [Suspect]
     Active Substance: VENLAFAXINE HYDROCHLORIDE
  5. CITALOPRAM [Suspect]
     Active Substance: CITALOPRAM HYDROBROMIDE
  6. ETHANOL [Suspect]
     Active Substance: ALCOHOL

REACTIONS (1)
  - Toxicity to various agents [Fatal]
